FAERS Safety Report 5400722-X (Version None)
Quarter: 2007Q3

REPORT INFORMATION
  Report Type: 
  Country: None (occurrence: None)
  Receive Date: 20070730
  Receipt Date: 20070718
  Transmission Date: 20080115
  Serious: Yes (Life-Threatening, Hospitalization)
  Sender: FDA-Public Use
  Company Number: FR-PFIZER INC-2007053385

PATIENT
  Sex: Male
  Weight: 60 kg

DRUGS (8)
  1. CHAMPIX [Suspect]
  2. CORDARONE [Suspect]
  3. COZAAR [Concomitant]
  4. PREVISCAN [Concomitant]
  5. PLAVIX [Concomitant]
  6. LASIX [Concomitant]
  7. DIGOXIN [Concomitant]
  8. HYZAAR [Concomitant]

REACTIONS (6)
  - ACUTE PULMONARY OEDEMA [None]
  - ARRHYTHMIA [None]
  - ATRIAL FIBRILLATION [None]
  - CARDIAC FAILURE [None]
  - HYPERTHYROIDISM [None]
  - PULMONARY OEDEMA [None]
